FAERS Safety Report 6209643-6 (Version None)
Quarter: 2009Q2

REPORT INFORMATION
  Report Type: 
  Country: None (occurrence: None)
  Receive Date: 20090601
  Receipt Date: 20071105
  Transmission Date: 20091009
  Serious: Yes (Hospitalization)
  Sender: FDA-Public Use
  Company Number: US-ASTRAZENECA-2007UW12049

PATIENT
  Age: 16387 Day
  Sex: Female
  Weight: 129.3 kg

DRUGS (25)
  1. SEROQUEL [Suspect]
     Indication: DEPRESSION
     Dosage: 100 MG - 225 MG
     Route: 048
     Dates: start: 20000912, end: 20060101
  2. SEROQUEL [Suspect]
     Indication: SCHIZOPHRENIA
     Dosage: 100 MG - 225 MG
     Route: 048
     Dates: start: 20000912, end: 20060101
  3. SEROQUEL [Suspect]
     Indication: SCHIZOAFFECTIVE DISORDER
     Dosage: 100 MG - 225 MG
     Route: 048
     Dates: start: 20000912, end: 20060101
  4. SEROQUEL [Suspect]
     Dosage: 25-100MG
     Route: 048
     Dates: start: 20000816
  5. SEROQUEL [Suspect]
     Dosage: 25-100MG
     Route: 048
     Dates: start: 20000816
  6. SEROQUEL [Suspect]
     Dosage: 25-100MG
     Route: 048
     Dates: start: 20000816
  7. RISPERDAL [Concomitant]
     Dates: start: 20020101, end: 20020101
  8. WELLBUTRIN [Concomitant]
  9. CELEXA [Concomitant]
  10. PROSOM [Concomitant]
  11. LORAZEPAM [Concomitant]
  12. SYNTHROID [Concomitant]
  13. DEXAMETHASONE 4MG TAB [Concomitant]
  14. GLIMEPIRIDE [Concomitant]
  15. ULTRAM [Concomitant]
  16. MELOXICAM [Concomitant]
  17. FUROSEMIDE [Concomitant]
  18. GEODON [Concomitant]
  19. BYETTA [Concomitant]
  20. PROPRANOLOL HYDROCHLORIDE [Concomitant]
  21. METFORMIN HCL [Concomitant]
  22. HYDROCODONE BITARTRATE [Concomitant]
  23. SKELAXIN [Concomitant]
  24. AVANDIA [Concomitant]
  25. LIPITOR [Concomitant]

REACTIONS (39)
  - ABDOMINAL PAIN [None]
  - ABDOMINAL PAIN UPPER [None]
  - BACK PAIN [None]
  - BREAST CYST [None]
  - BREAST MASS [None]
  - BRIEF PSYCHOTIC DISORDER WITH MARKED STRESSORS [None]
  - CARPAL TUNNEL SYNDROME [None]
  - CERUMEN IMPACTION [None]
  - CERVICOBRACHIAL SYNDROME [None]
  - CYSTITIS HAEMORRHAGIC [None]
  - DIZZINESS [None]
  - DYSPNOEA [None]
  - EAR PAIN [None]
  - FACIAL PAIN [None]
  - FALL [None]
  - FLANK PAIN [None]
  - GASTRITIS [None]
  - HAEMATURIA [None]
  - HYPERTENSION [None]
  - HYPOTHYROIDISM [None]
  - MENTAL DISORDER [None]
  - MICTURITION URGENCY [None]
  - MUSCULOSKELETAL PAIN [None]
  - NAUSEA [None]
  - NON-CARDIAC CHEST PAIN [None]
  - OEDEMA PERIPHERAL [None]
  - OSTEOARTHRITIS [None]
  - OVERDOSE [None]
  - PAIN [None]
  - PAIN IN EXTREMITY [None]
  - PARAESTHESIA [None]
  - PLANTAR FASCIITIS [None]
  - RADICULOPATHY [None]
  - RENAL FAILURE [None]
  - RENAL FAILURE ACUTE [None]
  - SCHIZOAFFECTIVE DISORDER [None]
  - TYPE 2 DIABETES MELLITUS [None]
  - VAGINAL INFECTION [None]
  - VOMITING [None]
